FAERS Safety Report 6443383-3 (Version None)
Quarter: 2009Q4

REPORT INFORMATION
  Report Type: 
  Country: None (occurrence: None)
  Receive Date: 20091112
  Receipt Date: 20091028
  Transmission Date: 20100525
  Serious: Yes (Hospitalization)
  Sender: FDA-Public Use
  Company Number: 2009AM000534

PATIENT
  Age: 77 Year
  Sex: Female
  Weight: 69.8539 kg

DRUGS (14)
  1. SYMLIN [Suspect]
     Indication: TYPE 2 DIABETES MELLITUS
     Dosage: 105 MCG; QD; SC
     Route: 058
     Dates: start: 20071101, end: 20090822
  2. NOVOLOG [Concomitant]
  3. DIGOXIN [Concomitant]
  4. DUONEB [Concomitant]
  5. COUMADIN [Concomitant]
  6. CARDIZEM [Concomitant]
  7. NEXIUM [Concomitant]
  8. FUROSEMIDE [Concomitant]
  9. KLOR-CON [Concomitant]
  10. LISINOPRIL [Concomitant]
  11. LOVASTATIN [Concomitant]
  12. NITROGLYCERIN [Concomitant]
  13. PAXIL [Concomitant]
  14. PREV MEDS [Concomitant]

REACTIONS (5)
  - BLOOD GLUCOSE INCREASED [None]
  - CHRONIC OBSTRUCTIVE PULMONARY DISEASE [None]
  - CONDITION AGGRAVATED [None]
  - HYPOGLYCAEMIC UNCONSCIOUSNESS [None]
  - INTERNATIONAL NORMALISED RATIO ABNORMAL [None]
